FAERS Safety Report 6187616-X (Version None)
Quarter: 2009Q2

REPORT INFORMATION
  Report Type: 
  Country: None (occurrence: None)
  Receive Date: 20090511
  Receipt Date: 20090427
  Transmission Date: 20091009
  Serious: Yes (Other)
  Sender: FDA-Public Use
  Company Number: IMP_04363_2009

PATIENT
  Age: 69 Year
  Sex: Female

DRUGS (1)
  1. OXYBUTYIN CHLORIDE [Suspect]
     Indication: DRUG USE FOR UNKNOWN INDICATION
     Dosage: 15 MG QD

REACTIONS (1)
  - ABDOMINAL PAIN UPPER [None]
